FAERS Safety Report 11820929 (Version 1)
Quarter: 2015Q4

REPORT INFORMATION
  Report Type: Spontaneous
  Country: US (occurrence: US)
  Receive Date: 20151210
  Receipt Date: 20151210
  Transmission Date: 20160305
  Serious: No
  Sender: FDA-Public Use
  Company Number: US-JNJFOC-20150500062

PATIENT
  Age: 63 Year
  Sex: Female

DRUGS (12)
  1. IMBRUVICA [Suspect]
     Active Substance: IBRUTINIB
     Indication: CHRONIC LYMPHOCYTIC LEUKAEMIA
     Dosage: 280 MG QD FOR 3 WEEKS, THEN 1 WEEK OFF
     Route: 065
     Dates: start: 20141017
  2. AMBIEN [Concomitant]
     Active Substance: ZOLPIDEM TARTRATE
  3. ESTRACE [Concomitant]
     Active Substance: ESTRADIOL
  4. METAMUCIL [Concomitant]
     Active Substance: PLANTAGO SEED
  5. LIPITOR [Concomitant]
     Active Substance: ATORVASTATIN CALCIUM
  6. CRANBERRY EXTRACT [Concomitant]
     Active Substance: CRANBERRY JUICE
  7. METOPROLOL [Concomitant]
     Active Substance: METOPROLOL
  8. FLAXSEED [Concomitant]
     Active Substance: FLAX SEED
  9. MACRODANTIN [Concomitant]
     Active Substance: NITROFURANTOIN
  10. VITAMIN D [Concomitant]
     Active Substance: CHOLECALCIFEROL
  11. IMBRUVICA [Suspect]
     Active Substance: IBRUTINIB
     Indication: CHRONIC LYMPHOCYTIC LEUKAEMIA
     Route: 065
  12. ACYCLOVIR. [Concomitant]
     Active Substance: ACYCLOVIR

REACTIONS (3)
  - Abdominal pain [Recovering/Resolving]
  - Gastrointestinal toxicity [Unknown]
  - Incorrect dose administered [Recovered/Resolved]

NARRATIVE: CASE EVENT DATE: 20141017
